FAERS Safety Report 20931201 (Version 1)
Quarter: 2022Q2

REPORT INFORMATION
  Report Type: Spontaneous
  Country: US (occurrence: None)
  Receive Date: 20220607
  Receipt Date: 20220607
  Transmission Date: 20220721
  Serious: No
  Sender: FDA-Public Use
  Company Number: None

PATIENT

DRUGS (1)
  1. PLAVIX [Suspect]
     Active Substance: CLOPIDOGREL BISULFATE
     Indication: Angiopathy
     Dates: start: 20190523, end: 20210122

REACTIONS (6)
  - Confusional state [None]
  - Dizziness [None]
  - Fatigue [None]
  - Speech disorder [None]
  - Eye disorder [None]
  - Eye operation [None]
